FAERS Safety Report 21325921 (Version 2)
Quarter: 2022Q3

REPORT INFORMATION
  Report Type: Report from Study
  Country: US (occurrence: US)
  Receive Date: 20220913
  Receipt Date: 20220929
  Transmission Date: 20221026
  Serious: No
  Sender: FDA-Public Use
  Company Number: US-SA-SAC20220909001294

PATIENT
  Age: 58 Year
  Sex: Female

DRUGS (14)
  1. AUBAGIO [Suspect]
     Active Substance: TERIFLUNOMIDE
     Indication: Multiple sclerosis
     Dosage: UNK
     Route: 048
     Dates: start: 20220903
  2. LOVASTATIN [Concomitant]
     Active Substance: LOVASTATIN
  3. LOSARTAN [Concomitant]
     Active Substance: LOSARTAN
  4. ISOSORBIDE [Concomitant]
     Active Substance: ISOSORBIDE
  5. OMEPRAZOLE [Concomitant]
     Active Substance: OMEPRAZOLE
  6. METOPROLOL SUCCINATE [Concomitant]
     Active Substance: METOPROLOL SUCCINATE
  7. DULOXETINE [Concomitant]
     Active Substance: DULOXETINE
  8. IRON [Concomitant]
     Active Substance: IRON
  9. POTASSIUM [Concomitant]
     Active Substance: POTASSIUM
  10. ASPIRIN [Concomitant]
     Active Substance: ASPIRIN
  11. VITAMIN B [Concomitant]
     Active Substance: VITAMIN B
  12. VITAMIN C [Concomitant]
     Active Substance: ASCORBIC ACID
  13. VITAMIN D NOS [Concomitant]
     Active Substance: VITAMIN D NOS
  14. VITAMINS [Concomitant]
     Active Substance: VITAMINS

REACTIONS (1)
  - Diarrhoea [Recovered/Resolved]

NARRATIVE: CASE EVENT DATE: 20220905
